FAERS Safety Report 16739918 (Version 2)
Quarter: 2019Q3

REPORT INFORMATION
  Report Type: Report from Study
  Country: US (occurrence: US)
  Receive Date: 20190826
  Receipt Date: 20190827
  Transmission Date: 20191005
  Serious: Yes (Other)
  Sender: FDA-Public Use
  Company Number: US-ROCHE-2383374

PATIENT
  Sex: Female
  Weight: 91.17 kg

DRUGS (2)
  1. OCREVUS [Suspect]
     Active Substance: OCRELIZUMAB
     Indication: RELAPSING MULTIPLE SCLEROSIS
     Dosage: OTHER INFUSION ON 28/MAR/2019
     Route: 042
     Dates: start: 20180313
  2. OCREVUS [Suspect]
     Active Substance: OCRELIZUMAB
     Dosage: DATE OF TREATMENT: 27/SEP/2018
     Route: 042

REACTIONS (1)
  - Cholelithiasis [Unknown]
